FAERS Safety Report 9661804 (Version 1)
Quarter: 2013Q4

REPORT INFORMATION
  Report Type: Spontaneous
  Country: US (occurrence: US)
  Receive Date: 20131031
  Receipt Date: 20131031
  Transmission Date: 20140711
  Serious: No
  Sender: FDA-Public Use
  Company Number: US-PURDUE-USA-2010-0072020

PATIENT
  Sex: Female

DRUGS (5)
  1. OXYCONTIN (NDA 22-272) [Suspect]
     Indication: BACK INJURY
     Dosage: 40 MG, BID
     Route: 048
     Dates: start: 20100922
  2. OXYCONTIN (NDA 22-272) [Suspect]
     Indication: NECK INJURY
  3. ONE A DAY WOMEN^S [Concomitant]
  4. CALCIUM + VITAMIN D                /01483701/ [Concomitant]
  5. TRILIFTO [Concomitant]

REACTIONS (2)
  - Pain [Not Recovered/Not Resolved]
  - Abdominal pain upper [Not Recovered/Not Resolved]
